FAERS Safety Report 10242600 (Version 1)
Quarter: 2014Q2

REPORT INFORMATION
  Report Type: Spontaneous
  Country: DE (occurrence: DE)
  Receive Date: 20140617
  Receipt Date: 20140617
  Transmission Date: 20141212
  Serious: Yes (Other)
  Sender: FDA-Public Use
  Company Number: DE-B.I. PHARMACEUTICALS,INC./RIDGEFIELD-2014-BI-27195BY

PATIENT
  Sex: Female

DRUGS (1)
  1. TELMISARTAN + HYDROCHLOROTHIAZIDE [Suspect]
     Indication: PRODUCT USED FOR UNKNOWN INDICATION
     Dosage: DAILY DOSE:KINZALKOMB: 40 PER 12.5
     Route: 065

REACTIONS (3)
  - Eyelid oedema [Unknown]
  - Eye haemorrhage [Unknown]
  - Ocular hyperaemia [Unknown]
